FAERS Safety Report 5150699-X (Version None)
Quarter: 2006Q4

REPORT INFORMATION
  Report Type: 
  Country: None (occurrence: None)
  Receive Date: 20061114
  Receipt Date: 20061103
  Transmission Date: 20070319
  Serious: Yes (Other)
  Sender: FDA-Public Use
  Company Number: US-JNJFOC-20061101549

PATIENT
  Sex: Male

DRUGS (2)
  1. CONCERTA [Suspect]
     Indication: ATTENTION DEFICIT/HYPERACTIVITY DISORDER
     Route: 048
  2. THERA-FLU [Interacting]
     Indication: NASOPHARYNGITIS

REACTIONS (5)
  - AGGRESSION [None]
  - AGITATION [None]
  - DRUG INTERACTION [None]
  - MUSCLE TIGHTNESS [None]
  - PALLOR [None]
